FAERS Safety Report 19277375 (Version 1)
Quarter: 2021Q2

REPORT INFORMATION
  Report Type: Other
  Country: JP (occurrence: JP)
  Receive Date: 20210520
  Receipt Date: 20210520
  Transmission Date: 20210717
  Serious: Yes (Other)
  Sender: FDA-Public Use
  Company Number: JP-ROCHE-2831247

PATIENT

DRUGS (4)
  1. BEVACIZUMAB. [Suspect]
     Active Substance: BEVACIZUMAB
     Indication: COLORECTAL CANCER METASTATIC
     Route: 065
  2. IRINOTECAN [Concomitant]
     Active Substance: IRINOTECAN
  3. OXALIPLATIN. [Concomitant]
     Active Substance: OXALIPLATIN
  4. TAS102 [Suspect]
     Active Substance: TIPIRACIL HYDROCHLORIDE\TRIFLURIDINE
     Indication: COLORECTAL CANCER METASTATIC
     Route: 065

REACTIONS (8)
  - Neutropenia [Unknown]
  - Leukopenia [Unknown]
  - Febrile neutropenia [Unknown]
  - Nausea [Unknown]
  - Thrombocytopenia [Unknown]
  - Hypertension [Unknown]
  - Anaemia [Unknown]
  - Proteinuria [Unknown]
